FAERS Safety Report 21632398 (Version 2)
Quarter: 2023Q1

REPORT INFORMATION
  Report Type: Report from Study
  Country: US (occurrence: US)
  Receive Date: 20221123
  Receipt Date: 20230119
  Transmission Date: 20230418
  Serious: No
  Sender: FDA-Public Use
  Company Number: US-ABBVIE-22K-163-4431445-00

PATIENT
  Age: 59 Year
  Sex: Male

DRUGS (2)
  1. IMBRUVICA [Suspect]
     Active Substance: IBRUTINIB
     Indication: Chronic lymphocytic leukaemia
     Route: 048
     Dates: start: 20211025
  2. IMBRUVICA [Suspect]
     Active Substance: IBRUTINIB
     Indication: Chronic lymphocytic leukaemia
     Route: 048

REACTIONS (12)
  - Back pain [Unknown]
  - Faeces soft [Unknown]
  - Diarrhoea [Unknown]
  - Dysphonia [Unknown]
  - Abdominal distension [Not Recovered/Not Resolved]
  - Rhinorrhoea [Unknown]
  - Flatulence [Unknown]
  - Sunburn [Unknown]
  - Contusion [Unknown]
  - Petechiae [Not Recovered/Not Resolved]
  - Arthralgia [Unknown]
  - Throat irritation [Unknown]

NARRATIVE: CASE EVENT DATE: 20220601
